FAERS Safety Report 17442885 (Version 1)
Quarter: 2020Q1

REPORT INFORMATION
  Report Type: Spontaneous
  Country: US (occurrence: US)
  Receive Date: 20200205
  Receipt Date: 20200205
  Transmission Date: 20200409
  Serious: Yes (Hospitalization)
  Sender: FDA-Public Use
  Company Number: None

PATIENT
  Age: 64 Year
  Sex: Male

DRUGS (1)
  1. DIVALPROEX (DIVALPROEX NA 250MG TAB, SA) [Suspect]
     Active Substance: DIVALPROEX SODIUM
     Indication: SEIZURE
     Dosage: ?          OTHER FREQUENCY:AM;?
     Route: 048
     Dates: start: 20110701

REACTIONS (6)
  - Encephalopathy [None]
  - Hyperammonaemia [None]
  - Drug level increased [None]
  - Fall [None]
  - Cognitive disorder [None]
  - Tremor [None]

NARRATIVE: CASE EVENT DATE: 20200129
